FAERS Safety Report 6517681-9 (Version None)
Quarter: 2009Q4

REPORT INFORMATION
  Report Type: 
  Country: None (occurrence: None)
  Receive Date: 20091224
  Receipt Date: 20091215
  Transmission Date: 20100525
  Serious: Yes (Other)
  Sender: FDA-Public Use
  Company Number: US-SANOFI-AVENTIS-2009SA003036

PATIENT
  Age: 74 Year
  Sex: Female
  Weight: 56.8 kg

DRUGS (9)
  1. MULTAQ [Suspect]
     Indication: ATRIAL FIBRILLATION
     Route: 048
     Dates: start: 20090901
  2. MULTAQ [Suspect]
     Route: 048
     Dates: end: 20091201
  3. MULTAQ [Suspect]
     Route: 048
     Dates: start: 20091201
  4. DARVON [Concomitant]
     Indication: PAIN
  5. XALATAN [Concomitant]
     Indication: GLAUCOMA
     Route: 031
  6. LEXAPRO [Concomitant]
     Indication: ANXIETY
     Route: 065
  7. SYNTHROID [Concomitant]
     Indication: THYROIDECTOMY
     Route: 065
  8. DIOVAN HCT [Concomitant]
     Route: 065
  9. ATIVAN [Concomitant]
     Indication: ANXIETY
     Route: 065

REACTIONS (12)
  - ARTHRALGIA [None]
  - ASTHENIA [None]
  - ATRIAL FIBRILLATION [None]
  - BLOOD PRESSURE INCREASED [None]
  - DIZZINESS [None]
  - DRUG INTOLERANCE [None]
  - FATIGUE [None]
  - HEART RATE INCREASED [None]
  - INFLUENZA LIKE ILLNESS [None]
  - INTENTIONAL DRUG MISUSE [None]
  - MUSCLE SPASMS [None]
  - PAIN [None]
